FAERS Safety Report 10432330 (Version 2)
Quarter: 2014Q3

REPORT INFORMATION
  Report Type: Spontaneous
  Country: US (occurrence: US)
  Receive Date: 20140905
  Receipt Date: 20140917
  Transmission Date: 20150326
  Serious: Yes (Death, Hospitalization)
  Sender: FDA-Public Use
  Company Number: US-UNITED THERAPEUTICS-UNT-2014-006690

PATIENT
  Age: 79 Year
  Sex: Male
  Weight: 72.56 kg

DRUGS (1)
  1. TYVASO [Suspect]
     Active Substance: TREPROSTINIL
     Indication: COR PULMONALE CHRONIC
     Dosage: 18-54 MICROGRAMS, QID
     Dates: start: 20121107

REACTIONS (10)
  - Orthopnoea [Unknown]
  - Oxygen consumption increased [Unknown]
  - Fluid overload [Unknown]
  - Pneumonia [Unknown]
  - Sputum discoloured [Unknown]
  - Dyspnoea [Unknown]
  - Death [Fatal]
  - Tracheobronchitis [Unknown]
  - Productive cough [Unknown]
  - General physical health deterioration [Unknown]

NARRATIVE: CASE EVENT DATE: 2014
